FAERS Safety Report 20057694 (Version 2)
Quarter: 2021Q4

REPORT INFORMATION
  Report Type: Spontaneous
  Country: US (occurrence: US)
  Receive Date: 20211111
  Receipt Date: 20211216
  Transmission Date: 20220303
  Serious: No
  Sender: FDA-Public Use
  Company Number: US-PFIZER INC-202101375518

PATIENT
  Age: 25 Year
  Sex: Female
  Weight: 74.84 kg

DRUGS (1)
  1. DEPO-PROVERA [Suspect]
     Active Substance: MEDROXYPROGESTERONE ACETATE
     Indication: Contraception
     Dosage: 104 MG, EVERY 3 MONTHS (ONCE INJECTION EVERY THREE MONTHS)

REACTIONS (3)
  - Wrong technique in device usage process [Unknown]
  - Incorrect dose administered by device [Unknown]
  - Device occlusion [Unknown]
